FAERS Safety Report 7988114-0 (Version None)
Quarter: 2011Q4

REPORT INFORMATION
  Report Type: 
  Country: None (occurrence: None)
  Receive Date: 20111216
  Receipt Date: 20111207
  Transmission Date: 20120403
  Serious: Yes (Other)
  Sender: FDA-Public Use
  Company Number: BR-SANOFI-AVENTIS-2011SA026231

PATIENT
  Sex: Female

DRUGS (2)
  1. LANTUS [Suspect]
     Route: 058
  2. REGULAR INSULIN [Concomitant]
     Route: 058

REACTIONS (3)
  - HYPERGLYCAEMIA [None]
  - TENOSYNOVITIS [None]
  - INJECTION SITE HAEMORRHAGE [None]
